FAERS Safety Report 12612180 (Version 2)
Quarter: 2016Q3

REPORT INFORMATION
  Report Type: Not Available
  Country: None (occurrence: US)
  Receive Date: 20160801
  Receipt Date: 20160811
  Transmission Date: 20161109
  Serious: No
  Sender: FDA-Public Use
  Company Number: US-AKORN-36078

PATIENT
  Age: 74 Year
  Sex: Female

DRUGS (1)
  1. AK-FLUOR [Suspect]
     Active Substance: FLUORESCEIN SODIUM

REACTIONS (2)
  - Urticaria [Recovered/Resolved]
  - Chest discomfort [Recovered/Resolved]
